FAERS Safety Report 11330989 (Version 8)
Quarter: 2016Q3

REPORT INFORMATION
  Report Type: Report from Study
  Country: US (occurrence: US)
  Receive Date: 20150803
  Receipt Date: 20160802
  Transmission Date: 20161109
  Serious: Yes (Other)
  Sender: FDA-Public Use
  Company Number: PHEH2015US009851

PATIENT
  Age: 23 Year
  Sex: Female

DRUGS (7)
  1. AFINITOR [Suspect]
     Active Substance: EVEROLIMUS
     Dosage: 2.5 MG, QD
     Route: 048
     Dates: start: 20150427
  2. AFINITOR [Suspect]
     Active Substance: EVEROLIMUS
     Dosage: 5 MG, QD
     Route: 048
     Dates: start: 20160114, end: 20160316
  3. FELBATOL [Concomitant]
     Active Substance: FELBAMATE
     Indication: PRODUCT USED FOR UNKNOWN INDICATION
     Dosage: UNK
     Route: 065
  4. ZONEGRAN [Concomitant]
     Active Substance: ZONISAMIDE
     Indication: PRODUCT USED FOR UNKNOWN INDICATION
     Dosage: UNK
     Route: 065
  5. AFINITOR [Suspect]
     Active Substance: EVEROLIMUS
     Dosage: 7.5 MG, QD
     Route: 048
  6. ZANTAC [Concomitant]
     Active Substance: RANITIDINE HYDROCHLORIDE
     Indication: PRODUCT USED FOR UNKNOWN INDICATION
     Dosage: UNK
     Route: 065
  7. AFINITOR [Suspect]
     Active Substance: EVEROLIMUS
     Dosage: 5 MG, QD
     Route: 048

REACTIONS (17)
  - Lip dry [Unknown]
  - Menstruation irregular [Unknown]
  - Pallor [Recovered/Resolved]
  - Malaise [Recovering/Resolving]
  - Rash [Unknown]
  - Mouth ulceration [Recovered/Resolved]
  - Skin lesion [Unknown]
  - Pyrexia [Recovered/Resolved]
  - Blood cholesterol increased [Unknown]
  - Abnormal behaviour [Unknown]
  - Acne [Unknown]
  - Nasopharyngitis [Recovered/Resolved]
  - Ovarian cyst [Recovered/Resolved]
  - Tremor [Unknown]
  - Metrorrhagia [Unknown]
  - Dysmenorrhoea [Recovered/Resolved]
  - Therapeutic response unexpected [Unknown]

NARRATIVE: CASE EVENT DATE: 20150513
